FAERS Safety Report 12470978 (Version 1)
Quarter: 2016Q2

REPORT INFORMATION
  Report Type: Spontaneous
  Country: US (occurrence: None)
  Receive Date: 20160615
  Receipt Date: 20160615
  Transmission Date: 20160815
  Serious: No
  Sender: FDA-Public Use
  Company Number: None

PATIENT
  Age: 13 Year
  Sex: Female

DRUGS (2)
  1. PROMACTA [Suspect]
     Active Substance: ELTROMBOPAG OLAMINE
     Indication: HAEMORRHAGIC DISORDER
     Route: 048
     Dates: start: 20160510
  2. PROMACTA [Suspect]
     Active Substance: ELTROMBOPAG OLAMINE
     Indication: PURPURA
     Route: 048
     Dates: start: 20160510

REACTIONS (2)
  - Pain [None]
  - Gastric disorder [None]

NARRATIVE: CASE EVENT DATE: 201605
